FAERS Safety Report 16730235 (Version 1)
Quarter: 2019Q3

REPORT INFORMATION
  Report Type: Spontaneous
  Country: US (occurrence: US)
  Receive Date: 20190822
  Receipt Date: 20190822
  Transmission Date: 20191005
  Serious: No
  Sender: FDA-Public Use
  Company Number: US-TEVA-2019-US-1094631

PATIENT
  Sex: Female

DRUGS (1)
  1. MEPERIDINE HYDROCHLORIDE. [Suspect]
     Active Substance: MEPERIDINE HYDROCHLORIDE
     Indication: SICKLE CELL ANAEMIA
     Route: 065
     Dates: start: 1969

REACTIONS (1)
  - Drug ineffective [Unknown]
